FAERS Safety Report 4927638-7 (Version None)
Quarter: 2006Q1

REPORT INFORMATION
  Report Type: 
  Country: None (occurrence: None)
  Receive Date: 20060228
  Receipt Date: 20050112
  Transmission Date: 20060701
  Serious: Yes (Hospitalization)
  Sender: FDA-Public Use
  Company Number: US-MERCK-0501USA02388

PATIENT
  Age: 66 Year
  Sex: Female
  Weight: 97 kg

DRUGS (5)
  1. VIOXX [Suspect]
     Indication: ARTHRITIS
     Route: 048
     Dates: start: 20010101, end: 20040901
  2. DIOVAN [Concomitant]
     Route: 065
  3. MAXZIDE [Concomitant]
     Route: 065
  4. LIPITOR [Concomitant]
     Route: 065
  5. GLYBURIDE [Concomitant]
     Route: 065

REACTIONS (8)
  - AKINESIA [None]
  - ARTERIAL OCCLUSIVE DISEASE [None]
  - CHEST PAIN [None]
  - CORONARY ARTERY DISEASE [None]
  - DIABETES MELLITUS NON-INSULIN-DEPENDENT [None]
  - HYPERTENSION [None]
  - MITRAL VALVE INCOMPETENCE [None]
  - THROMBOSIS [None]
